FAERS Safety Report 15103839 (Version 1)
Quarter: 2018Q3

REPORT INFORMATION
  Report Type: Spontaneous
  Country: US (occurrence: US)
  Receive Date: 20180703
  Receipt Date: 20180703
  Transmission Date: 20181010
  Serious: Yes (Hospitalization, Other)
  Sender: FDA-Public Use
  Company Number: US-OTSUKA-2018_015122

PATIENT
  Sex: Female

DRUGS (1)
  1. ABILIFY [Suspect]
     Active Substance: ARIPIPRAZOLE
     Indication: BIPOLAR DISORDER
     Dosage: 10MG?20MG, QD
     Route: 065
     Dates: start: 20040809, end: 20160408

REACTIONS (11)
  - Anxiety [Unknown]
  - Bankruptcy [Unknown]
  - Gambling disorder [Recovered/Resolved]
  - Injury [Unknown]
  - Mental disorder [Unknown]
  - Obsessive-compulsive disorder [Unknown]
  - Anhedonia [Unknown]
  - Suicide attempt [Recovered/Resolved]
  - Suicidal ideation [Recovered/Resolved]
  - Economic problem [Unknown]
  - Pain [Unknown]
